FAERS Safety Report 5565570-9 (Version None)
Quarter: 2007Q4

REPORT INFORMATION
  Report Type: 
  Country: None (occurrence: None)
  Receive Date: 20071218
  Receipt Date: 20051129
  Transmission Date: 20080405
  Serious: Yes (Death, Other)
  Sender: FDA-Public Use
  Company Number: AT-ROCHE-427177

PATIENT
  Age: 69 Year
  Sex: Female

DRUGS (1)
  1. KYTRIL [Suspect]
     Indication: ANTIEMETIC SUPPORTIVE CARE
     Route: 042
     Dates: start: 20051028, end: 20051028

REACTIONS (3)
  - CHILLS [None]
  - HYPERTENSION [None]
  - MULTI-ORGAN FAILURE [None]
